FAERS Safety Report 4327734-1 (Version None)
Quarter: 2004Q1

REPORT INFORMATION
  Report Type: 
  Country: None (occurrence: None)
  Receive Date: 20040325
  Receipt Date: 20040311
  Transmission Date: 20041129
  Serious: Yes (Hospitalization, Disabling, Other)
  Sender: FDA-Public Use
  Company Number: 2003029605

PATIENT
  Age: 33 Year
  Sex: Male

DRUGS (13)
  1. LIPITOR [Suspect]
     Indication: BLOOD CHOLESTEROL INCREASED
     Dosage: 10 MG (DAILY)
     Dates: start: 19980101
  2. LISINOPRIL [Suspect]
     Indication: HYPERTENSION
     Dosage: 10 MG (DAILY)
     Dates: start: 19981010, end: 19981101
  3. NAPROXEN SODIUM [Suspect]
     Indication: LIMB DISCOMFORT
     Dosage: ORAL
     Route: 048
     Dates: start: 20020301, end: 20020309
  4. BUPROPION HYDROCHLORIDE [Concomitant]
  5. FLUTICASONE PROPIONATE [Concomitant]
  6. SALBUTAMOL (SALBUTAMOL) [Concomitant]
  7. FLUVOXAMINE MALEATE [Concomitant]
  8. PAROXETINE HCL [Concomitant]
  9. METHYLPHENIDATE HCL [Concomitant]
  10. ACETYLSALICYLIC ACID SRT [Concomitant]
  11. METFORMIN HCL [Concomitant]
  12. MULTIPLE VITAMINS (ERGOCALCIFEROL, ASCORBIC ACID, TOCOPHEROL, FOLIC AC [Concomitant]
  13. TRAZODONE HCL [Concomitant]

REACTIONS (34)
  - ANXIETY [None]
  - BACK PAIN [None]
  - BLOOD GLUCOSE INCREASED [None]
  - CARDIOMEGALY [None]
  - CATHETER RELATED INFECTION [None]
  - CHEST PAIN [None]
  - DYSPNOEA [None]
  - EOSINOPHIL PERCENTAGE INCREASED [None]
  - FLANK PAIN [None]
  - HAEMATOCRIT DECREASED [None]
  - HAEMODIALYSIS [None]
  - HAEMOGLOBIN DECREASED [None]
  - HEADACHE [None]
  - MEAN PLATELET VOLUME DECREASED [None]
  - MITRAL VALVE DISEASE [None]
  - MITRAL VALVE INCOMPETENCE [None]
  - NAUSEA [None]
  - PAIN [None]
  - PERICARDIAL EFFUSION [None]
  - PHYSICAL DISABILITY [None]
  - PLATELET COUNT INCREASED [None]
  - PNEUMONIA [None]
  - POST PROCEDURAL PAIN [None]
  - PROTHROMBIN TIME PROLONGED [None]
  - RED BLOOD CELL COUNT DECREASED [None]
  - RED CELL DISTRIBUTION WIDTH DECREASED [None]
  - RENAL FAILURE [None]
  - RENAL INJURY [None]
  - RHABDOMYOLYSIS [None]
  - SINUS TACHYCARDIA [None]
  - STAPHYLOCOCCAL INFECTION [None]
  - TRICUSPID VALVE INCOMPETENCE [None]
  - VENTRICULAR HYPERTROPHY [None]
  - VOMITING [None]
